FAERS Safety Report 8258164-8 (Version None)
Quarter: 2012Q2

REPORT INFORMATION
  Report Type: 
  Country: None (occurrence: None)
  Receive Date: 20120404
  Receipt Date: 20120328
  Transmission Date: 20120825
  Serious: Yes (Other)
  Sender: FDA-Public Use
  Company Number: PHHY2012JP028063

PATIENT
  Age: 73 Year
  Sex: Female

DRUGS (4)
  1. LANSOPRAZOLE [Suspect]
     Dosage: 30 MG/DAILY
     Route: 048
  2. CANDESARTAN CILEXETIL [Suspect]
     Indication: HYPERTENSION
     Dosage: 8 MG/DAILY
     Route: 048
  3. CLARITHROMYCIN [Suspect]
     Dosage: 200 MG, BID
     Route: 048
  4. PARLODEL [Suspect]
     Indication: ACROMEGALY
     Dosage: 2.5 MG,DAILY
     Route: 048

REACTIONS (2)
  - HAEMOGLOBIN DECREASED [None]
  - ANAEMIA [None]
